FAERS Safety Report 13238597 (Version 1)
Quarter: 2017Q1

REPORT INFORMATION
  Report Type: Spontaneous
  Country: US (occurrence: US)
  Receive Date: 20170216
  Receipt Date: 20170216
  Transmission Date: 20170428
  Serious: No
  Sender: FDA-Public Use
  Company Number: US-ACTAVIS-2016-07951

PATIENT
  Age: 85 Year
  Sex: Male
  Weight: 80 kg

DRUGS (2)
  1. LORATADINE/PSEUDOEPHEDRINE SULFATE (ACTAVIS LABORATORIES FL) [Suspect]
     Active Substance: LORATADINE\PSEUDOEPHEDRINE SULFATE
     Indication: PERENNIAL ALLERGY
  2. LORATADINE/PSEUDOEPHEDRINE SULFATE (ACTAVIS LABORATORIES FL) [Suspect]
     Active Substance: LORATADINE\PSEUDOEPHEDRINE SULFATE
     Indication: NASAL CONGESTION
     Dosage: 1 DF, DAILY
     Route: 048
     Dates: start: 20160404, end: 20160410

REACTIONS (1)
  - Constipation [Not Recovered/Not Resolved]

NARRATIVE: CASE EVENT DATE: 20160408
